FAERS Safety Report 9586128 (Version 2)
Quarter: 2014Q2

REPORT INFORMATION
  Report Type: Spontaneous
  Country: JP (occurrence: None)
  Receive Date: 20131001
  Receipt Date: 20140616
  Transmission Date: 20141212
  Serious: Yes (Death)
  Sender: FDA-Public Use
  Company Number: SYM-2013-10713

PATIENT
  Age: 44 Year
  Sex: Female
  Weight: 46 kg

DRUGS (9)
  1. CHOREAZINE [Suspect]
     Indication: HUNTINGTON^S DISEASE
     Route: 048
     Dates: start: 20130628, end: 20130704
  2. EBRANTIL (URAPIDIL) [Concomitant]
  3. LANSOPRAZOLE (LANSOPRAZOLE) [Concomitant]
  4. GASOAL (DIMETICONE) [Concomitant]
  5. SERENACE (HALOPERIDOL) [Concomitant]
  6. SODIUM VALPROATE (VALPROATE SODIUM) [Concomitant]
  7. RIVOTRIL (CLONAZEPAM) [Concomitant]
  8. NELUROLEN (NITRAZEPAM) [Concomitant]
  9. MAGLAX [Concomitant]

REACTIONS (3)
  - Dermatitis [None]
  - Catheter placement [None]
  - Cardio-respiratory arrest [None]
